FAERS Safety Report 16692182 (Version 1)
Quarter: 2019Q3

REPORT INFORMATION
  Report Type: Report from Study
  Country: ES (occurrence: ES)
  Receive Date: 20190812
  Receipt Date: 20190812
  Transmission Date: 20191004
  Serious: Yes (Hospitalization)
  Sender: FDA-Public Use
  Company Number: ES-MYLANLABS-2019M1074442

PATIENT
  Age: 83 Year
  Sex: Female

DRUGS (6)
  1. FUROSEMIDE. [Interacting]
     Active Substance: FUROSEMIDE
     Indication: CHRONIC KIDNEY DISEASE
     Dosage: 80 MILLIGRAM, QD
     Route: 048
     Dates: start: 20170628, end: 20180325
  2. GLICLAZIDA [Concomitant]
     Active Substance: GLICLAZIDE
     Indication: DIABETES MELLITUS
     Dosage: 120 MILLIGRAM, QD
     Route: 048
     Dates: start: 20160215, end: 20180325
  3. DILIBAN [Concomitant]
     Active Substance: ACETAMINOPHEN\TRAMADOL HYDROCHLORIDE
     Indication: ARTHRALGIA
     Dosage: 225 MILLIGRAM, QD
     Route: 048
     Dates: start: 20150915, end: 20180325
  4. ENANTYUM [Interacting]
     Active Substance: DEXKETOPROFEN TROMETAMOL
     Indication: ARTHRALGIA
     Dosage: 75 MILLIGRAM, QD
     Route: 048
     Dates: start: 20180309, end: 20180325
  5. METFORMIN [Concomitant]
     Active Substance: METFORMIN HYDROCHLORIDE
     Indication: DIABETES MELLITUS
     Dosage: 1 GRAM, QD
     Route: 048
     Dates: start: 20180228, end: 20180325
  6. LISINOPRIL. [Suspect]
     Active Substance: LISINOPRIL
     Indication: HYPERTENSION
     Dosage: 20 MILLIGRAM, QD
     Route: 048
     Dates: start: 20170216, end: 20180325

REACTIONS (2)
  - Drug interaction [Unknown]
  - Acute kidney injury [Recovered/Resolved]

NARRATIVE: CASE EVENT DATE: 20180318
